FAERS Safety Report 9839397 (Version 2)
Quarter: 2014Q1

REPORT INFORMATION
  Report Type: Report from Study
  Country: BR (occurrence: BR)
  Receive Date: 20140123
  Receipt Date: 20140221
  Transmission Date: 20141002
  Serious: Yes (Death, Hospitalization)
  Sender: FDA-Public Use
  Company Number: BR-ROCHE-1338071

PATIENT
  Age: 71 Year
  Sex: Female

DRUGS (6)
  1. XOLAIR [Suspect]
     Indication: ASTHMA
     Dosage: 1 AMPOULE
     Route: 065
     Dates: start: 2010
  2. XOLAIR [Suspect]
     Route: 058
     Dates: start: 20131121, end: 20131121
  3. CAPTOPRIL [Concomitant]
     Route: 065
  4. LABIRIN [Concomitant]
  5. BEROTEC [Concomitant]
  6. ATROVENT [Concomitant]

REACTIONS (4)
  - Cardio-respiratory arrest [Fatal]
  - Dyspnoea [Not Recovered/Not Resolved]
  - Hypertension [Unknown]
  - Labyrinthitis [Unknown]
